FAERS Safety Report 7119330-8 (Version None)
Quarter: 2010Q4

REPORT INFORMATION
  Report Type: 
  Country: None (occurrence: None)
  Receive Date: 20101123
  Receipt Date: 20101115
  Transmission Date: 20110411
  Serious: Yes (Hospitalization)
  Sender: FDA-Public Use
  Company Number: US-BAYER-201041597NA

PATIENT
  Age: 20 Year
  Sex: Female

DRUGS (5)
  1. NEXAVAR [Suspect]
     Indication: EWING'S SARCOMA
     Dosage: TOTAL DAILY DOSE: 800 MG  UNIT DOSE: 200 MG
     Route: 048
     Dates: start: 20101112
  2. NEXAVAR [Suspect]
     Dosage: TOTAL DAILY DOSE: 800 MG  UNIT DOSE: 200 MG
     Route: 048
     Dates: start: 20101106, end: 20101111
  3. LOVENOX [Concomitant]
  4. COUMADIN [Concomitant]
  5. VELCADE [Concomitant]

REACTIONS (12)
  - ARTHRALGIA [None]
  - DECREASED APPETITE [None]
  - DRY SKIN [None]
  - ERYTHEMA [None]
  - FATIGUE [None]
  - HEADACHE [None]
  - ORAL DISCOMFORT [None]
  - PAIN OF SKIN [None]
  - PARAESTHESIA ORAL [None]
  - SKIN WARM [None]
  - VENA CAVA THROMBOSIS [None]
  - VOMITING [None]
